FAERS Safety Report 8558514-9 (Version None)
Quarter: 2012Q3

REPORT INFORMATION
  Report Type: 
  Country: None (occurrence: None)
  Receive Date: 20120801
  Receipt Date: 20120724
  Transmission Date: 20120928
  Serious: Yes (Hospitalization)
  Sender: FDA-Public Use
  Company Number: US-B.I. PHARMACEUTICALS,INC./RIDGEFIELD-2012-BP-16573BP

PATIENT
  Sex: Male

DRUGS (12)
  1. PRADAXA [Suspect]
     Indication: ATRIAL FIBRILLATION
     Dosage: 300 MG
     Route: 048
     Dates: start: 20120301
  2. HYDROCODONE BITARTRATE + ACETAMINOPHEN [Concomitant]
     Indication: PAIN
     Route: 048
     Dates: start: 20120601
  3. LEVOTHYROXINE SODIUM [Concomitant]
     Indication: HYPOTHYROIDISM
     Dosage: 125 MCG
     Route: 048
     Dates: start: 19990101
  4. CARVEDILOL [Concomitant]
     Indication: ATRIAL FIBRILLATION
     Dosage: 6.25 MG
     Route: 048
     Dates: start: 20120401
  5. PACERONE [Concomitant]
     Indication: ATRIAL FIBRILLATION
     Dosage: 200 MG
     Route: 048
     Dates: start: 20120401
  6. ASPIRIN [Concomitant]
     Indication: PROPHYLAXIS
     Dosage: 81 MG
     Route: 048
     Dates: start: 20070101, end: 20120723
  7. CRESTOR [Concomitant]
     Indication: BLOOD CHOLESTEROL INCREASED
     Dosage: 40 MG
     Route: 048
     Dates: start: 20111101
  8. POTASSIUM [Concomitant]
     Indication: VITAMIN SUPPLEMENTATION
     Dosage: 20 MEQ
     Route: 048
     Dates: start: 20110101
  9. MAGNESIUM [Concomitant]
     Indication: VITAMIN SUPPLEMENTATION
     Dosage: 400 MG
     Route: 048
     Dates: start: 20110101
  10. GLIPIZIDE [Concomitant]
     Indication: TYPE 2 DIABETES MELLITUS
     Dosage: 5 MG
     Route: 048
     Dates: start: 19990101
  11. AMLODIPINE [Concomitant]
     Indication: ATRIAL FIBRILLATION
     Dosage: 5 MG
     Route: 048
     Dates: start: 20120401
  12. GABAPENTIN [Concomitant]
     Indication: NEURALGIA
     Dosage: 900 MG
     Route: 048
     Dates: start: 20120601, end: 20120701

REACTIONS (6)
  - PAIN IN EXTREMITY [None]
  - MUSCULAR WEAKNESS [None]
  - ATRIAL FIBRILLATION [None]
  - BACK PAIN [None]
  - ARTHRALGIA [None]
  - BACK INJURY [None]
